FAERS Safety Report 7487597-2 (Version None)
Quarter: 2011Q2

REPORT INFORMATION
  Report Type: 
  Country: None (occurrence: None)
  Receive Date: 20110518
  Receipt Date: 20100615
  Transmission Date: 20111010
  Serious: No
  Sender: FDA-Public Use
  Company Number: US-AMGEN-KDL408024

PATIENT
  Age: 58 Year
  Sex: Female
  Weight: 77.2 kg

DRUGS (6)
  1. CYCLOBENZAPRINE [Concomitant]
     Dosage: UNK UNK, BID
  2. MELPHALAN HYDROCHLORIDE [Concomitant]
     Dosage: 5 MG, QD
  3. ENBREL [Suspect]
     Indication: RHEUMATOID ARTHRITIS
     Dosage: 50 MG, QWK
     Route: 058
     Dates: start: 20100408
  4. AMITRIPTYLINE HCL [Concomitant]
     Dosage: UNK UNK, QD
  5. METHOTREXATE [Concomitant]
     Dosage: 2.5 MG, 4 TIMES/WK
  6. BACLOFEN [Suspect]

REACTIONS (12)
  - MUSCLE RUPTURE [None]
  - DRUG INEFFECTIVE [None]
  - INJECTION SITE ERYTHEMA [None]
  - INJECTION SITE REACTION [None]
  - ABDOMINAL PAIN [None]
  - BACK PAIN [None]
  - DIZZINESS [None]
  - ROTATOR CUFF SYNDROME [None]
  - MATRIX METALLOPROTEINASE-3 [None]
  - DEFAECATION URGENCY [None]
  - DIARRHOEA [None]
  - INJECTION SITE SWELLING [None]
